FAERS Safety Report 8235889-1 (Version None)
Quarter: 2012Q1

REPORT INFORMATION
  Report Type: 
  Country: None (occurrence: None)
  Receive Date: 20120326
  Receipt Date: 20120320
  Transmission Date: 20120608
  Serious: No
  Sender: FDA-Public Use
  Company Number: US-PFIZER INC-2012072766

PATIENT
  Sex: Female
  Weight: 52 kg

DRUGS (5)
  1. EFFEXOR XR [Suspect]
     Indication: FIBROMYALGIA
     Dosage: 75 MG, 1X/DAY
     Route: 048
     Dates: start: 20031001, end: 20120318
  2. CLONAZEPAM [Concomitant]
     Indication: FEELING OF RELAXATION
  3. EFFEXOR XR [Suspect]
     Indication: DEPRESSION
  4. CLONAZEPAM [Concomitant]
     Indication: SLEEP DISORDER
     Dosage: UNK
  5. EFFEXOR XR [Suspect]
     Indication: PANIC ATTACK

REACTIONS (6)
  - INSOMNIA [None]
  - WITHDRAWAL SYNDROME [None]
  - ANAEMIA [None]
  - PARAESTHESIA [None]
  - ABDOMINAL PAIN UPPER [None]
  - GASTROINTESTINAL PAIN [None]
